FAERS Safety Report 23691310 (Version 2)
Quarter: 2024Q3

REPORT INFORMATION
  Report Type: Spontaneous
  Country: US (occurrence: US)
  Receive Date: 20240401
  Receipt Date: 20240926
  Transmission Date: 20241016
  Serious: No
  Sender: NOVARTIS
  Company Number: US-002147023-NVSC2024US069120

PATIENT
  Age: 87 Year
  Sex: Female
  Weight: 56.7 kg

DRUGS (2)
  1. LEQVIO [Suspect]
     Active Substance: INCLISIRAN SODIUM
     Indication: Low density lipoprotein increased
     Dosage: 284 MG/KG (1 SUBCUTANEOUS INJECTION)
     Route: 058
     Dates: start: 20240301
  2. LEQVIO [Suspect]
     Active Substance: INCLISIRAN SODIUM
     Dosage: UNK (INITIAL 3 MONTHS THEN EVERY 6 MONTHS)
     Route: 058
     Dates: start: 20240319

REACTIONS (3)
  - Injection site haematoma [Recovered/Resolved]
  - Injection site haematoma [Recovered/Resolved]
  - Injection site bruising [Recovered/Resolved]

NARRATIVE: CASE EVENT DATE: 20240301
